FAERS Safety Report 9231819 (Version 1)
Quarter: 2013Q2

REPORT INFORMATION
  Report Type: Spontaneous
  Country: US (occurrence: US)
  Receive Date: 20130415
  Receipt Date: 20130415
  Transmission Date: 20140414
  Serious: No
  Sender: FDA-Public Use
  Company Number: US-PFIZER INC-2013116651

PATIENT
  Age: 64 Year
  Sex: Female

DRUGS (7)
  1. THERMACARE HEATWRAPS [Suspect]
     Indication: ARTHRITIS
     Dosage: UNK
  2. THERMACARE HEATWRAPS [Suspect]
     Indication: BACK PAIN
  3. DEPO-MEDROL [Suspect]
     Indication: BACK PAIN
     Dosage: UNK
  4. DEPO-MEDROL [Suspect]
     Indication: ARTHRITIS
  5. PENTAZOCINE/NALOXONE [Concomitant]
     Indication: PAIN
     Dosage: UNK
  6. THERMACARE HEATWRAPS [Concomitant]
     Dosage: UNK
  7. THERMACARE HEATWRAPS [Concomitant]
     Dosage: UNK

REACTIONS (3)
  - Device misuse [Unknown]
  - Meniscus injury [Unknown]
  - Pain [Unknown]
